FAERS Safety Report 8058066-6 (Version None)
Quarter: 2012Q1

REPORT INFORMATION
  Report Type: 
  Country: None (occurrence: None)
  Receive Date: 20120118
  Receipt Date: 20120118
  Transmission Date: 20120608
  Serious: Yes (Life-Threatening, Hospitalization)
  Sender: FDA-Public Use
  Company Number: None

PATIENT
  Age: 74 Year
  Sex: Female

DRUGS (2)
  1. LENALIDOMIDE [Suspect]
     Dosage: 10 MG D1-28 PO
     Route: 048
     Dates: start: 20110817, end: 20111123
  2. AZACITIDINE [Suspect]
     Dosage: 75 MG/M2 D1-5 IV
     Route: 042
     Dates: start: 20110817, end: 20111111

REACTIONS (5)
  - FEBRILE NEUTROPENIA [None]
  - DYSPNOEA EXERTIONAL [None]
  - HYPERTENSION [None]
  - HYPOTENSION [None]
  - TRANSFUSION RELATED COMPLICATION [None]
